FAERS Safety Report 6349632-4 (Version None)
Quarter: 2009Q3

REPORT INFORMATION
  Report Type: 
  Country: None (occurrence: None)
  Receive Date: 20090911
  Receipt Date: 20090904
  Transmission Date: 20100115
  Serious: Yes (Death, Hospitalization)
  Sender: FDA-Public Use
  Company Number: US-ABBOTT-09P-163-0503389-00

PATIENT
  Sex: Female
  Weight: 45.4 kg

DRUGS (2)
  1. HUMIRA [Suspect]
     Indication: PSORIASIS
     Route: 058
     Dates: start: 20081216, end: 20090203
  2. TRIAMCINOLONE [Concomitant]
     Indication: PSORIASIS
     Dates: start: 20080909

REACTIONS (7)
  - ALCOHOL WITHDRAWAL SYNDROME [None]
  - HALLUCINATION [None]
  - HEPATIC CYST [None]
  - HYPOTHERMIA [None]
  - MALNUTRITION [None]
  - PNEUMONIA ASPIRATION [None]
  - SYSTEMIC INFLAMMATORY RESPONSE SYNDROME [None]
